FAERS Safety Report 4795581-2 (Version None)
Quarter: 2005Q4

REPORT INFORMATION
  Report Type: 
  Country: None (occurrence: None)
  Receive Date: 20051012
  Receipt Date: 20051003
  Transmission Date: 20060501
  Serious: Yes (Disabling, Other)
  Sender: FDA-Public Use
  Company Number: US-MERCK-0510USA01827

PATIENT
  Age: 57 Year
  Sex: Male
  Weight: 107 kg

DRUGS (11)
  1. VIOXX [Suspect]
     Indication: ARTHRITIS
     Route: 048
     Dates: start: 19970101, end: 20040101
  2. TOPROL-XL [Concomitant]
     Route: 065
  3. COLCHICINE [Concomitant]
     Route: 065
  4. CLARITIN [Concomitant]
     Route: 065
  5. MICARDIS [Concomitant]
     Route: 065
  6. [THERAPY UNSPECIFIED] [Concomitant]
     Route: 065
  7. LASIX [Concomitant]
     Route: 065
  8. [THERAPY UNSPECIFIED] [Concomitant]
     Route: 065
  9. NEXIUM [Concomitant]
     Route: 065
  10. ZOCOR [Concomitant]
     Route: 048
  11. QUINOPHAN [Concomitant]
     Route: 065

REACTIONS (3)
  - CEREBROVASCULAR ACCIDENT [None]
  - MYOCARDIAL INFARCTION [None]
  - THROMBOSIS [None]
